FAERS Safety Report 24232060 (Version 1)
Quarter: 2024Q3

REPORT INFORMATION
  Report Type: Spontaneous
  Country: US (occurrence: US)
  Receive Date: 20240821
  Receipt Date: 20240821
  Transmission Date: 20241016
  Serious: Yes (Hospitalization)
  Sender: ASCEND
  Company Number: US-Ascend Therapeutics US, LLC-2160649

PATIENT
  Age: 21 Year
  Sex: Female

DRUGS (2)
  1. ANDROGEL [Suspect]
     Active Substance: TESTOSTERONE
     Indication: Hormone replacement therapy
     Route: 065
  2. TESTOSTERONE [Suspect]
     Active Substance: TESTOSTERONE
     Route: 065

REACTIONS (2)
  - Atrioventricular block second degree [Recovered/Resolved]
  - Pulmonary embolism [Recovered/Resolved]
